FAERS Safety Report 21919973 (Version 3)
Quarter: 2023Q1

REPORT INFORMATION
  Report Type: Report from Study
  Country: US (occurrence: US)
  Receive Date: 20230127
  Receipt Date: 20230210
  Transmission Date: 20230418
  Serious: Yes (Hospitalization, Other)
  Sender: FDA-Public Use
  Company Number: US-JNJFOC-20230134288

PATIENT
  Age: 75 Year
  Sex: Male
  Weight: 83 kg

DRUGS (14)
  1. ABIRATERONE ACETATE [Suspect]
     Active Substance: ABIRATERONE ACETATE
     Indication: Hormone-refractory prostate cancer
     Route: 048
     Dates: start: 20220527, end: 20230103
  2. ABIRATERONE ACETATE [Suspect]
     Active Substance: ABIRATERONE ACETATE
     Dosage: LAST DOSE ON 06-JAN-2023
     Route: 048
     Dates: end: 20230107
  3. PREDNISOLONE [Suspect]
     Active Substance: PREDNISOLONE
     Indication: Hormone-refractory prostate cancer
     Route: 048
     Dates: start: 20220527
  4. ABEMACICLIB [Suspect]
     Active Substance: ABEMACICLIB
     Indication: Hormone-refractory prostate cancer
     Route: 048
     Dates: start: 20220527, end: 20230103
  5. ZILMLO [Concomitant]
     Indication: Hypertension
     Route: 065
     Dates: start: 20211112
  6. ASPIRIN [Concomitant]
     Active Substance: ASPIRIN
     Indication: Cerebral infarction
     Route: 065
     Dates: start: 20170110
  7. METHYLCOBALAMIN [Concomitant]
     Active Substance: METHYLCOBALAMIN
     Indication: Neuropathy peripheral
     Route: 065
     Dates: start: 20220521
  8. GOSERELIN ACETATE [Concomitant]
     Active Substance: GOSERELIN ACETATE
     Route: 065
     Dates: start: 20220422
  9. PEKIRON [Concomitant]
     Route: 065
     Dates: start: 20220818
  10. EFINACONAZOLE [Concomitant]
     Active Substance: EFINACONAZOLE
     Indication: Tinea pedis
     Route: 065
     Dates: start: 20220818
  11. MAGNESIUM OXIDE [Concomitant]
     Active Substance: MAGNESIUM OXIDE
     Route: 065
     Dates: start: 20221014
  12. SENNOSIDES A AND B [Concomitant]
     Active Substance: SENNOSIDES A AND B
     Indication: Constipation
     Route: 065
     Dates: start: 20221014
  13. HEPARINOID [Concomitant]
     Indication: Prophylaxis
     Route: 065
     Dates: start: 20221216
  14. CALONAL [Concomitant]
     Active Substance: ACETAMINOPHEN
     Route: 065
     Dates: start: 20221216

REACTIONS (7)
  - Bacterial infection [Recovered/Resolved]
  - Nephrolithiasis [Unknown]
  - Decreased appetite [Recovering/Resolving]
  - Malaise [Recovering/Resolving]
  - Herpes zoster [Recovered/Resolved]
  - Vomiting [Recovering/Resolving]
  - Post herpetic neuralgia [Not Recovered/Not Resolved]

NARRATIVE: CASE EVENT DATE: 20221202
